FAERS Safety Report 7523245-0 (Version None)
Quarter: 2011Q2

REPORT INFORMATION
  Report Type: 
  Country: None (occurrence: None)
  Receive Date: 20110603
  Receipt Date: 20110601
  Transmission Date: 20111010
  Serious: Yes (Death, Hospitalization)
  Sender: FDA-Public Use
  Company Number: US-CELGENEUS-163-21880-11060056

PATIENT
  Age: 81 Year
  Sex: Female
  Weight: 74.4 kg

DRUGS (4)
  1. REVLIMID [Suspect]
     Indication: MULTIPLE MYELOMA
     Dosage: 25 MILLIGRAM
     Route: 048
     Dates: start: 20050705, end: 20080813
  2. OMEPRAZOLE [Concomitant]
     Dosage: 40 MILLIGRAM
     Route: 065
  3. LASIX [Concomitant]
     Dosage: 40 MILLIGRAM
     Route: 065
  4. DEXAMETHASONE [Suspect]
     Indication: MULTIPLE MYELOMA
     Dosage: 40 MILLIGRAM
     Route: 048
     Dates: start: 20050705

REACTIONS (1)
  - ACUTE MYELOID LEUKAEMIA [None]
